FAERS Safety Report 25453017 (Version 2)
Quarter: 2025Q2

REPORT INFORMATION
  Report Type: Spontaneous
  Country: FR (occurrence: FR)
  Receive Date: 20250618
  Receipt Date: 20250620
  Transmission Date: 20250716
  Serious: Yes (Hospitalization)
  Sender: OTSUKA
  Company Number: None

PATIENT
  Age: 85 Year
  Sex: Female
  Weight: 61 kg

DRUGS (9)
  1. ARIPIPRAZOLE [Suspect]
     Active Substance: ARIPIPRAZOLE
     Indication: Dementia
     Dosage: 10 MG, QD
     Route: 065
     Dates: end: 20250319
  2. CYAMEMAZINE [Suspect]
     Active Substance: CYAMEMAZINE
     Indication: Dementia
     Dosage: 25 MG, QD (FILM-COATED SCORED TABLET)
     Route: 065
     Dates: end: 20250319
  3. ASPIRIN [Concomitant]
     Active Substance: ASPIRIN
     Indication: Product used for unknown indication
     Dosage: 100 MG, QD
     Route: 065
  4. FLUOXETINE HYDROCHLORIDE [Concomitant]
     Active Substance: FLUOXETINE HYDROCHLORIDE
     Indication: Product used for unknown indication
     Dosage: 20 MG, QD
     Route: 065
  5. METFORMIN HYDROCHLORIDE [Concomitant]
     Active Substance: METFORMIN HYDROCHLORIDE
     Indication: Product used for unknown indication
     Dosage: 1000 MG, DAILY (500 MG MORNING AND MIDDAY)
     Route: 065
  6. OXAZEPAM [Concomitant]
     Active Substance: OXAZEPAM
     Indication: Product used for unknown indication
     Dosage: 10 MG, QD
     Route: 065
  7. XALATAN [Concomitant]
     Active Substance: LATANOPROST
     Indication: Product used for unknown indication
     Dosage: 1 DF, QD
     Route: 065
  8. GLYCOPYRRONIUM\INDACATEROL [Concomitant]
     Active Substance: GLYCOPYRRONIUM\INDACATEROL
     Indication: Product used for unknown indication
     Dosage: 1 DF, QD (85 MICROGRAMS/43 MICROGRAMS, INHALATION POWDER CAPSULE)
     Route: 065
  9. CHOLECALCIFEROL [Concomitant]
     Active Substance: CHOLECALCIFEROL
     Indication: Product used for unknown indication
     Dosage: 1 DF, QM (ORAL SOLUTION IN VIAL)
     Route: 065

REACTIONS (1)
  - Ischaemic stroke [Recovered/Resolved with Sequelae]

NARRATIVE: CASE EVENT DATE: 20250319
